FAERS Safety Report 17144975 (Version 1)
Quarter: 2019Q4

REPORT INFORMATION
  Report Type: Spontaneous
  Country: US (occurrence: US)
  Receive Date: 20191211
  Receipt Date: 20191211
  Transmission Date: 20200122
  Serious: Yes (Other)
  Sender: FDA-Public Use
  Company Number: None

PATIENT
  Age: 46 Year
  Sex: Female
  Weight: 93.6 kg

DRUGS (5)
  1. ESCITALOPRAM 40 MG DAILY [Concomitant]
     Dates: start: 20171206
  2. METHYLPHENIDATE ER - GENERIC CONCERTA [Suspect]
     Active Substance: METHYLPHENIDATE HYDROCHLORIDE
     Indication: ATTENTION DEFICIT/HYPERACTIVITY DISORDER
     Route: 048
     Dates: start: 20191005
  3. TRAZODONE 100 MG QHS PRN INSOMNIA [Concomitant]
     Dates: start: 20150727
  4. METHYLPHENIDATE ER - GENERIC CONCERTA [Suspect]
     Active Substance: METHYLPHENIDATE HYDROCHLORIDE
     Indication: ATTENTION DEFICIT/HYPERACTIVITY DISORDER
     Route: 048
     Dates: start: 20191115
  5. BUPROPION XL 150 MG DAILY [Concomitant]
     Dates: start: 20150921

REACTIONS (3)
  - Drug ineffective [None]
  - Product substitution issue [None]
  - Symptom recurrence [None]

NARRATIVE: CASE EVENT DATE: 20191015
